FAERS Safety Report 18838853 (Version 5)
Quarter: 2023Q2

REPORT INFORMATION
  Report Type: Spontaneous
  Country: US (occurrence: US)
  Receive Date: 20210203
  Receipt Date: 20230601
  Transmission Date: 20230722
  Serious: Yes (Other)
  Sender: FDA-Public Use
  Company Number: US-PFIZER INC-2021079399

PATIENT
  Age: 62 Year
  Sex: Female

DRUGS (1)
  1. XELJANZ XR [Suspect]
     Active Substance: TOFACITINIB CITRATE
     Indication: Musculoskeletal stiffness
     Dosage: 11 MG, 1X/DAY
     Route: 048

REACTIONS (5)
  - Pneumonia [Unknown]
  - Off label use [Unknown]
  - Wrong technique in product usage process [Unknown]
  - White blood cell count decreased [Unknown]
  - Infection [Unknown]

NARRATIVE: CASE EVENT DATE: 20230201
